FAERS Safety Report 5192786-6 (Version None)
Quarter: 2006Q4

REPORT INFORMATION
  Report Type: 
  Country: None (occurrence: None)
  Receive Date: 20061228
  Receipt Date: 20040819
  Transmission Date: 20070319
  Serious: No
  Sender: FDA-Public Use
  Company Number: US-GLAXOSMITHKLINE-A0522781A

PATIENT
  Age: 26 Year
  Sex: Female
  Weight: 59.1 kg

DRUGS (1)
  1. FLONASE [Suspect]
     Route: 045

REACTIONS (2)
  - GASTROOESOPHAGEAL REFLUX DISEASE [None]
  - OESOPHAGEAL CANDIDIASIS [None]
